FAERS Safety Report 17846108 (Version 1)
Quarter: 2020Q2

REPORT INFORMATION
  Report Type: Spontaneous
  Country: US (occurrence: US)
  Receive Date: 20200531
  Receipt Date: 20200531
  Transmission Date: 20200714
  Serious: Yes (Disabling)
  Sender: FDA-Public Use
  Company Number: None

PATIENT
  Age: 55 Year
  Sex: Female
  Weight: 91.35 kg

DRUGS (6)
  1. INDAPAMIDE (LOZAL) [Concomitant]
  2. POTASSIUM CL ER [Concomitant]
     Active Substance: POTASSIUM CHLORIDE
  3. JANUVIA [Suspect]
     Active Substance: SITAGLIPTIN PHOSPHATE
     Indication: BLOOD GLUCOSE INCREASED
     Dosage: ?          QUANTITY:1 TABLET(S);?
     Route: 048
  4. PROTONIX [Concomitant]
     Active Substance: PANTOPRAZOLE SODIUM
  5. LOVASTATIN. [Concomitant]
     Active Substance: LOVASTATIN
  6. HAIR SKIN AND NAILS VITAMIN [Concomitant]

REACTIONS (3)
  - Musculoskeletal stiffness [None]
  - Eye disorder [None]
  - Product substitution issue [None]

NARRATIVE: CASE EVENT DATE: 20200409
